FAERS Safety Report 7216910-6 (Version None)
Quarter: 2011Q1

REPORT INFORMATION
  Report Type: 
  Country: None (occurrence: None)
  Receive Date: 20110110
  Receipt Date: 20101231
  Transmission Date: 20110831
  Serious: Yes (Hospitalization, Other)
  Sender: FDA-Public Use
  Company Number: GB-JNJFOC-20110100375

PATIENT

DRUGS (3)
  1. MICONAZOLE [Suspect]
     Route: 048
  2. MICONAZOLE [Suspect]
     Indication: ILL-DEFINED DISORDER
     Route: 048
  3. WARFARIN [Interacting]
     Indication: ILL-DEFINED DISORDER
     Route: 065

REACTIONS (3)
  - INTERNATIONAL NORMALISED RATIO INCREASED [None]
  - DRUG INTERACTION [None]
  - HAEMATURIA [None]
